FAERS Safety Report 9467626 (Version 2)
Quarter: 2013Q3

REPORT INFORMATION
  Report Type: Spontaneous
  Country: CH (occurrence: CH)
  Receive Date: 20130821
  Receipt Date: 20130827
  Transmission Date: 20140515
  Serious: Yes (Hospitalization, Other)
  Sender: FDA-Public Use
  Company Number: PHHY2013CH089618

PATIENT
  Age: 61 Year
  Sex: Female

DRUGS (4)
  1. ONBREZ [Suspect]
     Indication: CHRONIC OBSTRUCTIVE PULMONARY DISEASE
     Dosage: 150 UG, QD
     Dates: start: 20130712
  2. DAIVONEX [Concomitant]
  3. DAIVOBET [Concomitant]
  4. XAMIOL [Concomitant]

REACTIONS (9)
  - Loss of consciousness [Recovered/Resolved]
  - Dehydration [Recovered/Resolved]
  - Concussion [Unknown]
  - Retrograde amnesia [Unknown]
  - Swelling face [Unknown]
  - Fall [Unknown]
  - Loose tooth [Unknown]
  - Radius fracture [Unknown]
  - Excoriation [Unknown]
